FAERS Safety Report 20156613 (Version 2)
Quarter: 2021Q4

REPORT INFORMATION
  Report Type: Spontaneous
  Country: ES (occurrence: ES)
  Receive Date: 20211207
  Receipt Date: 20211215
  Transmission Date: 20220303
  Serious: Yes (Other)
  Sender: FDA-Public Use
  Company Number: ES-GILEAD-2021-0559784

PATIENT
  Age: 49 Year
  Sex: Male

DRUGS (2)
  1. YESCARTA [Suspect]
     Active Substance: AXICABTAGENE CILOLEUCEL
     Indication: Diffuse large B-cell lymphoma refractory
     Dosage: UNK
     Route: 065
     Dates: start: 20210511, end: 20210511
  2. R GDP [Concomitant]
     Dosage: UNK
     Dates: start: 20210505

REACTIONS (17)
  - Encephalitis viral [Unknown]
  - B-cell aplasia [Unknown]
  - Transient ischaemic attack [Unknown]
  - Enterocolitis [Unknown]
  - Gastroenteritis salmonella [Unknown]
  - Escherichia urinary tract infection [Unknown]
  - Urinary retention [Unknown]
  - Infusion related reaction [Unknown]
  - Occipital neuralgia [Recovering/Resolving]
  - Facial paralysis [Recovering/Resolving]
  - Lung consolidation [Unknown]
  - Depression [Unknown]
  - Neurotoxicity [Unknown]
  - Confusional state [Unknown]
  - Cytopenia [Unknown]
  - Cytokine release syndrome [Unknown]
  - Febrile neutropenia [Unknown]

NARRATIVE: CASE EVENT DATE: 20210501
